FAERS Safety Report 7231013-2 (Version None)
Quarter: 2011Q1

REPORT INFORMATION
  Report Type: 
  Country: None (occurrence: None)
  Receive Date: 20110118
  Receipt Date: 20110105
  Transmission Date: 20110831
  Serious: Yes (Other)
  Sender: FDA-Public Use
  Company Number: JP-ROCHE-752619

PATIENT
  Age: 69 Year
  Sex: Female

DRUGS (7)
  1. SULTOPRIDE HYDROCHLORIDE [Suspect]
     Indication: SCHIZOPHRENIA
     Dosage: DOSAGE IS UNCERTAIN.
     Route: 048
  2. TRIHEXYPHENIDYL HCL [Suspect]
     Indication: SCHIZOPHRENIA
     Dosage: DOSAGE IS UNCERTAIN.
     Route: 048
  3. TIMIPERONE [Suspect]
     Indication: SCHIZOPHRENIA
     Dosage: DRUG NAME: CELMANIL, DOSAGE IS UNCERTAIN.
     Route: 048
  4. DIAZEPAM [Suspect]
     Indication: SCHIZOPHRENIA
     Dosage: DOSAGE IS UNCERTAIN.
     Route: 048
  5. ROHYPNOL [Suspect]
     Indication: SCHIZOPHRENIA
     Dosage: DOSAGE IS UNCERTAIN.
     Route: 048
  6. RISPERDONE [Suspect]
     Indication: SCHIZOPHRENIA
     Dosage: DOSAGE IS UNCERTAIN.
     Route: 048
  7. PROMETHAZINE HYDROCHLORIDE [Suspect]
     Indication: SCHIZOPHRENIA
     Dosage: DOSAGE IS UNCERTAIN.
     Route: 048

REACTIONS (1)
  - NEUROLEPTIC MALIGNANT SYNDROME [None]
